FAERS Safety Report 6825380-9 (Version None)
Quarter: 2010Q3

REPORT INFORMATION
  Report Type: 
  Country: None (occurrence: None)
  Receive Date: 20100708
  Receipt Date: 20070219
  Transmission Date: 20110219
  Serious: No
  Sender: FDA-Public Use
  Company Number: US-PFIZER INC-2007002173

PATIENT
  Sex: Female
  Weight: 65.77 kg

DRUGS (7)
  1. CHANTIX [Suspect]
     Indication: SMOKING CESSATION THERAPY
     Dates: start: 20061227
  2. FOSAMAX [Concomitant]
  3. ASACOL [Concomitant]
     Indication: COLITIS
  4. DEPAKOTE [Concomitant]
     Indication: BIPOLAR DISORDER
  5. TRAZODONE [Concomitant]
  6. EVISTA [Concomitant]
  7. VYTORIN [Concomitant]

REACTIONS (4)
  - ABDOMINAL DISCOMFORT [None]
  - DEPRESSION [None]
  - SLUGGISHNESS [None]
  - SOMNOLENCE [None]
